FAERS Safety Report 8003453-5 (Version None)
Quarter: 2011Q4

REPORT INFORMATION
  Report Type: 
  Country: None (occurrence: None)
  Receive Date: 20111222
  Receipt Date: 20111222
  Transmission Date: 20120403
  Serious: No
  Sender: FDA-Public Use
  Company Number: None

PATIENT
  Age: 23 Year
  Sex: Male
  Weight: 83.914 kg

DRUGS (1)
  1. LARIAM [Suspect]
     Indication: MALARIA PROPHYLAXIS
     Dosage: 250 MG.
     Route: 048
     Dates: start: 19930723, end: 19931225

REACTIONS (8)
  - LOSS OF CONSCIOUSNESS [None]
  - ANGER [None]
  - NIGHTMARE [None]
  - FALL [None]
  - SOMNAMBULISM [None]
  - CONFUSIONAL STATE [None]
  - SUICIDAL IDEATION [None]
  - DIZZINESS [None]
